FAERS Safety Report 7559436-2 (Version None)
Quarter: 2011Q2

REPORT INFORMATION
  Report Type: 
  Country: None (occurrence: None)
  Receive Date: 20110621
  Receipt Date: 20110613
  Transmission Date: 20111010
  Serious: Yes (Hospitalization)
  Sender: FDA-Public Use
  Company Number: CA-BRISTOL-MYERS SQUIBB COMPANY-15506017

PATIENT
  Age: 90 Year
  Sex: Female

DRUGS (10)
  1. PLACEBO [Suspect]
     Indication: THROMBOSIS PROPHYLAXIS
     Route: 048
     Dates: start: 20091211
  2. PANTOPRAZOLE SODIUM [Concomitant]
  3. WARFARIN SODIUM [Suspect]
     Indication: THROMBOSIS PROPHYLAXIS
     Route: 048
     Dates: start: 20091211
  4. LIPITOR [Concomitant]
  5. VITALUX [Concomitant]
  6. PERINDOPRIL ERBUMINE [Concomitant]
  7. FERROUS GLUCONATE [Concomitant]
  8. FUROSEMIDE [Concomitant]
  9. ASPIRIN [Concomitant]
  10. BISOPROLOL FUMARATE [Concomitant]

REACTIONS (2)
  - MYOCARDIAL INFARCTION [None]
  - HIP FRACTURE [None]
